FAERS Safety Report 6828770-3 (Version None)
Quarter: 2010Q3

REPORT INFORMATION
  Report Type: 
  Country: None (occurrence: None)
  Receive Date: 20100709
  Receipt Date: 20070507
  Transmission Date: 20110219
  Serious: No
  Sender: FDA-Public Use
  Company Number: US-PFIZER INC-2007014085

PATIENT
  Sex: Female
  Weight: 83.91 kg

DRUGS (8)
  1. CHANTIX [Suspect]
     Indication: SMOKING CESSATION THERAPY
     Dates: start: 20070101
  2. ATIVAN [Concomitant]
  3. KLONOPIN [Concomitant]
  4. LAMICTAL [Concomitant]
  5. EFFEXOR [Concomitant]
  6. NEXIUM [Concomitant]
  7. MONTELUKAST [Concomitant]
  8. ALBUTEROL [Concomitant]
     Route: 055

REACTIONS (3)
  - ANXIETY [None]
  - FEELING ABNORMAL [None]
  - NERVOUSNESS [None]
